FAERS Safety Report 22006498 (Version 1)
Quarter: 2023Q1

REPORT INFORMATION
  Report Type: Spontaneous
  Country: CN (occurrence: CN)
  Receive Date: 20230217
  Receipt Date: 20230217
  Transmission Date: 20230417
  Serious: Yes (Other)
  Sender: FDA-Public Use
  Company Number: CN-PFIZER INC-PV202300029478

PATIENT
  Age: 52 Year
  Sex: Female

DRUGS (2)
  1. NIRMATRELVIR\RITONAVIR [Suspect]
     Active Substance: NIRMATRELVIR\RITONAVIR
     Indication: Pneumonia
     Dosage: NIRMATRELVIR/RITONAVIR 50MG/75MG PO Q6H
     Route: 048
     Dates: start: 20230120, end: 20230125
  2. NIRMATRELVIR\RITONAVIR [Suspect]
     Active Substance: NIRMATRELVIR\RITONAVIR
     Indication: COVID-19 treatment

REACTIONS (3)
  - Transaminases increased [Recovering/Resolving]
  - Off label use [Unknown]
  - Wrong strength [Unknown]

NARRATIVE: CASE EVENT DATE: 20230120
